FAERS Safety Report 17999939 (Version 1)
Quarter: 2020Q3

REPORT INFORMATION
  Report Type: Spontaneous
  Country: TR (occurrence: TR)
  Receive Date: 20200709
  Receipt Date: 20200709
  Transmission Date: 20201103
  Serious: Yes (Other)
  Sender: FDA-Public Use
  Company Number: NVSC2020TR190328

PATIENT
  Sex: Female

DRUGS (1)
  1. METHOTREXATE EBEWE [Suspect]
     Active Substance: METHOTREXATE
     Indication: VASCULITIS
     Dosage: UNK
     Route: 065

REACTIONS (2)
  - Drug dependence [Unknown]
  - Off label use [Unknown]
